FAERS Safety Report 25028674 (Version 4)
Quarter: 2025Q4

REPORT INFORMATION
  Report Type: Spontaneous
  Country: US (occurrence: US)
  Receive Date: 20250302
  Receipt Date: 20251019
  Transmission Date: 20260118
  Serious: Yes (Hospitalization, Other)
  Sender: SANOFI AVENTIS
  Company Number: US-SA-2025SA059985

PATIENT
  Age: 9 Year
  Sex: Male

DRUGS (2)
  1. LUMIZYME [Suspect]
     Active Substance: ALGLUCOSIDASE ALFA
     Dosage: 700 MG, QOW
     Route: 042
     Dates: end: 202502
  2. LUMIZYME [Suspect]
     Active Substance: ALGLUCOSIDASE ALFA
     Dosage: 1600 MG, QW
     Route: 042
     Dates: start: 2025

REACTIONS (12)
  - Pneumonia [Unknown]
  - Influenza [Unknown]
  - Urinary retention [Unknown]
  - Respiratory distress [Unknown]
  - Respiratory rate increased [Unknown]
  - Oxygen saturation decreased [Unknown]
  - Ankle fracture [Unknown]
  - Fall [Unknown]
  - Femur fracture [Unknown]
  - Oxygen saturation abnormal [Unknown]
  - Pyrexia [Unknown]
  - Inappropriate schedule of product administration [Unknown]

NARRATIVE: CASE EVENT DATE: 20250101
